FAERS Safety Report 12740024 (Version 9)
Quarter: 2019Q2

REPORT INFORMATION
  Report Type: Report from Study
  Country: None (occurrence: ES)
  Receive Date: 20160913
  Receipt Date: 20190507
  Transmission Date: 20190711
  Serious: Yes (Hospitalization, Other)
  Sender: FDA-Public Use
  Company Number: ES-ABBVIE-16K-144-1709105-00

PATIENT
  Age: 63 Year
  Sex: Male
  Weight: 58.8 kg

DRUGS (1)
  1. DUODOPA [Suspect]
     Active Substance: CARBIDOPA\LEVODOPA
     Indication: PARKINSON^S DISEASE
     Route: 050
     Dates: start: 200902

REACTIONS (20)
  - Stoma complication [Unknown]
  - Foreign body [Unknown]
  - Fungal infection [Not Recovered/Not Resolved]
  - Salivary hypersecretion [Not Recovered/Not Resolved]
  - Pyrexia [Unknown]
  - Gait disturbance [Unknown]
  - White blood cell count increased [Unknown]
  - Gastrointestinal stoma complication [Recovering/Resolving]
  - Gait disturbance [Not Recovered/Not Resolved]
  - Stoma site discharge [Not Recovered/Not Resolved]
  - Stoma site reaction [Recovered/Resolved]
  - Embedded device [Recovered/Resolved]
  - Loss of personal independence in daily activities [Unknown]
  - Dyskinesia [Unknown]
  - Stoma site reaction [Not Recovered/Not Resolved]
  - Embedded device [Recovered/Resolved]
  - Staphylococcal infection [Recovered/Resolved]
  - Stoma site erythema [Not Recovered/Not Resolved]
  - Freezing phenomenon [Unknown]
  - Weight decreased [Recovered/Resolved]

NARRATIVE: CASE EVENT DATE: 2016
